FAERS Safety Report 17274300 (Version 6)
Quarter: 2021Q3

REPORT INFORMATION
  Report Type: Spontaneous
  Country: US (occurrence: US)
  Receive Date: 20200115
  Receipt Date: 20210827
  Transmission Date: 20211014
  Serious: Yes (Other)
  Sender: FDA-Public Use
  Company Number: US-PFIZER INC-2019501404

PATIENT
  Age: 64 Year
  Sex: Female
  Weight: 67.57 kg

DRUGS (1)
  1. CHANTIX [Suspect]
     Active Substance: VARENICLINE TARTRATE
     Indication: SMOKING CESSATION THERAPY
     Dosage: 1 MG, TWICE DAILY
     Dates: start: 20200209

REACTIONS (7)
  - Weight decreased [Unknown]
  - Fall [Unknown]
  - Vertigo [Unknown]
  - Gait disturbance [Unknown]
  - Head injury [Unknown]
  - Haemorrhage [Unknown]
  - Pain [Unknown]
